FAERS Safety Report 8823962 (Version 1)
Quarter: 2012Q4

REPORT INFORMATION
  Report Type: 
  Country: US (occurrence: US)
  Receive Date: 20121003
  Receipt Date: 20121003
  Transmission Date: 20130627
  Serious: Yes (Hospitalization)
  Sender: FDA-Public Use
  Company Number: US-PFIZER INC-2012240717

PATIENT
  Age: 29 Year
  Sex: Male

DRUGS (1)
  1. BENEFIX [Suspect]
     Indication: HAEMORRHAGIC DISORDER
     Dosage: 63000 IU, UNK

REACTIONS (2)
  - Accident [Unknown]
  - Haemorrhage [Unknown]
